FAERS Safety Report 9140951 (Version 2)
Quarter: 2013Q1

REPORT INFORMATION
  Report Type: Spontaneous
  Country: JP (occurrence: JP)
  Receive Date: 20130305
  Receipt Date: 20130306
  Transmission Date: 20140127
  Serious: Yes (Other)
  Sender: FDA-Public Use
  Company Number: JP-PFIZER INC-2013075310

PATIENT
  Age: 38 Year
  Sex: Female

DRUGS (1)
  1. CHAMPIX [Suspect]
     Indication: NICOTINE DEPENDENCE
     Dosage: 0.5 MG, DAILY
     Route: 048

REACTIONS (1)
  - Genital haemorrhage [Recovered/Resolved]
